FAERS Safety Report 22070812 (Version 1)
Quarter: 2023Q1

REPORT INFORMATION
  Report Type: Spontaneous
  Country: US (occurrence: US)
  Receive Date: 20230307
  Receipt Date: 20230307
  Transmission Date: 20230418
  Serious: No
  Sender: FDA-Public Use
  Company Number: US-FreseniusKabi-FK202302481

PATIENT
  Age: 70 Year
  Sex: Male
  Weight: 103.7 kg

DRUGS (2)
  1. CISATRACURIUM [Suspect]
     Active Substance: CISATRACURIUM
     Indication: Endotracheal intubation
     Dosage: CESSATION DATE: 23-FEB-2023?20MG/10ML VIALS?10 MG, FOLLOWED BY 4MG MORE
     Route: 042
     Dates: start: 20230223, end: 20230223
  2. ETOMIDATE [Suspect]
     Active Substance: ETOMIDATE
     Indication: Endotracheal intubation

REACTIONS (1)
  - Drug ineffective [Unknown]

NARRATIVE: CASE EVENT DATE: 20230223
